FAERS Safety Report 8168160-7 (Version None)
Quarter: 2012Q1

REPORT INFORMATION
  Report Type: 
  Country: None (occurrence: None)
  Receive Date: 20120227
  Receipt Date: 20120222
  Transmission Date: 20120608
  Serious: Yes (Life-Threatening, Disabling, Other)
  Sender: FDA-Public Use
  Company Number: PHEH2012US000443

PATIENT
  Sex: Female

DRUGS (3)
  1. MOBIC [Concomitant]
     Dosage: 7.5 MG, BID
  2. RECLAST [Suspect]
     Dosage: 5MG/100ML, ONCE YEAR
     Route: 042
     Dates: start: 20111228
  3. TRAMADOL HCL [Concomitant]
     Dosage: 50 MG, PRN

REACTIONS (18)
  - PAIN IN EXTREMITY [None]
  - DIARRHOEA [None]
  - HEADACHE [None]
  - BACK PAIN [None]
  - CHEST PAIN [None]
  - DYSSTASIA [None]
  - FEELING ABNORMAL [None]
  - PYREXIA [None]
  - BURSITIS [None]
  - ARTHRALGIA [None]
  - NECK PAIN [None]
  - MUSCULOSKELETAL PAIN [None]
  - FALL [None]
  - PAIN [None]
  - ASTHENIA [None]
  - TENDONITIS [None]
  - MYOCARDIAL INFARCTION [None]
  - MYALGIA [None]
